FAERS Safety Report 16704188 (Version 2)
Quarter: 2019Q3

REPORT INFORMATION
  Report Type: Spontaneous
  Country: FR (occurrence: FR)
  Receive Date: 20190814
  Receipt Date: 20190925
  Transmission Date: 20191004
  Serious: Yes (Other)
  Sender: FDA-Public Use
  Company Number: FR-PFIZER INC-2019344900

PATIENT
  Sex: Female

DRUGS (2)
  1. KETOPROFENE [KETOPROFEN] [Suspect]
     Active Substance: KETOPROFEN
     Indication: SUICIDE ATTEMPT
     Dosage: 1 (UNKNOWN UNIT), SINGLE
     Dates: start: 20190109
  2. IBUPROFEN. [Suspect]
     Active Substance: IBUPROFEN
     Indication: SUICIDE ATTEMPT
     Dosage: 1 (UNKNOWN UNIT), SINGLE
     Dates: start: 20190109

REACTIONS (2)
  - Suicide attempt [Unknown]
  - Exposure during pregnancy [Unknown]
